FAERS Safety Report 17474737 (Version 1)
Quarter: 2020Q1

REPORT INFORMATION
  Report Type: Report from Study
  Country: CA (occurrence: CA)
  Receive Date: 20200228
  Receipt Date: 20200228
  Transmission Date: 20200409
  Serious: Yes (Other)
  Sender: FDA-Public Use
  Company Number: CA-JNJFOC-20190738314

PATIENT
  Age: 57 Year
  Sex: Male
  Weight: 58 kg

DRUGS (1)
  1. STELARA [Suspect]
     Active Substance: USTEKINUMAB
     Indication: PSORIASIS
     Dosage: STRENGTH = 45 MG
     Route: 058
     Dates: start: 20150212

REACTIONS (3)
  - Limb injury [Unknown]
  - Wound infection [Unknown]
  - Psoriasis [Recovering/Resolving]

NARRATIVE: CASE EVENT DATE: 2019
